FAERS Safety Report 9315151 (Version 1)
Quarter: 2013Q2

REPORT INFORMATION
  Report Type: Spontaneous
  Country: US (occurrence: US)
  Receive Date: 20130529
  Receipt Date: 20130529
  Transmission Date: 20140414
  Serious: No
  Sender: FDA-Public Use
  Company Number: US-ALLERGAN-1216568US

PATIENT
  Sex: Male

DRUGS (2)
  1. ZYMAXID [Suspect]
     Indication: CONJUNCTIVITIS
     Dosage: 2 GTT, TID
     Route: 047
     Dates: start: 20121116
  2. CLONIPINE [Concomitant]
     Indication: TINNITUS
     Dosage: 0.5 MG, BID
     Route: 048

REACTIONS (3)
  - Tinnitus [Unknown]
  - Night sweats [Unknown]
  - Diarrhoea [Unknown]
